FAERS Safety Report 10366117 (Version 1)
Quarter: 2014Q1

REPORT INFORMATION
  Report Type: Spontaneous
  Country: US (occurrence: None)
  Receive Date: 20140306
  Receipt Date: 20140306
  Transmission Date: 20141002
  Serious: Yes (Hospitalization)
  Sender: FDA-Public Use
  Company Number: 163-21880-13030221

PATIENT
  Age: 63 Year
  Sex: Female

DRUGS (7)
  1. REVLIMID [Suspect]
     Indication: PLASMA CELL MYELOMA
     Dosage: 25 MG, 14 IN 21 D, PO
     Route: 048
     Dates: start: 201205
  2. DEXAMETHASONE (UNKNOWN) [Concomitant]
  3. AMLODIPINE (UNKNOWN) [Concomitant]
  4. LISINOPRIL/HCTZ (PRINZIDE) (UNKNOWN) [Concomitant]
  5. ASA (ACETYLSALICYLIC ACID) (UNKNOWN) [Concomitant]
  6. ALBUTEROL (SALBUTAMOL) (UNKNOWN) [Concomitant]
  7. BECLOMETHASONE (BECLOMETASONE DIPROPIONATE) (INHALANT) [Concomitant]

REACTIONS (2)
  - Pneumonia [None]
  - Platelet count decreased [None]
